FAERS Safety Report 6049164-7 (Version None)
Quarter: 2009Q1

REPORT INFORMATION
  Report Type: 
  Country: None (occurrence: None)
  Receive Date: 20090123
  Receipt Date: 20090113
  Transmission Date: 20090719
  Serious: Yes (Hospitalization)
  Sender: FDA-Public Use
  Company Number: AT-ELI_LILLY_AND_COMPANY-AT200901002338

PATIENT
  Age: 65 Year
  Sex: Male
  Weight: 90 kg

DRUGS (19)
  1. CYMBALTA [Suspect]
     Indication: PAIN
     Dosage: 30 MG, DAILY (1/D)
     Route: 065
     Dates: start: 20080501, end: 20080101
  2. CYMBALTA [Suspect]
     Dosage: 60 MG, DAILY (1/D)
     Route: 065
     Dates: start: 20080101, end: 20080101
  3. CYMBALTA [Suspect]
     Dosage: 30 MG, DAILY (1/D)
     Route: 065
     Dates: start: 20080101, end: 20081201
  4. SPIRIVA [Concomitant]
     Dosage: 18 UG, 2/D
     Route: 065
  5. HYDROMORPHONE HCL [Concomitant]
     Dosage: 4 MG, DAILY (1/D)
  6. HYDROMORPHONE HCL [Concomitant]
     Dosage: 8 MG, DAILY (1/D)
     Route: 065
  7. PANKREATIN [Concomitant]
     Dosage: UNK UNK, DAILY (1/D)
     Route: 065
  8. AMARYL [Concomitant]
     Dosage: 2 MG, 2/D
     Route: 065
  9. METFORMIN HCL [Concomitant]
     Dosage: 850 MG, 3/D
     Route: 065
  10. ISOSORBIDE DINITRATE [Concomitant]
     Dosage: 50 MG, DAILY (1/D)
     Route: 065
  11. CONCOR /00802602/ [Concomitant]
     Dosage: 5 MG, DAILY (1/D)
     Route: 065
  12. SPIROBENE [Concomitant]
     Dosage: UNK UNK, DAILY (1/D)
     Route: 065
  13. ENALAPRIL [Concomitant]
     Dosage: UNK UNK, DAILY (1/D)
     Route: 065
  14. SIMVASTATIN [Concomitant]
     Dosage: 40 MG, DAILY (1/D)
     Route: 065
  15. ASPIRIN [Concomitant]
     Dosage: 50 MG, DAILY (1/D)
     Route: 065
  16. ZURCAL [Concomitant]
     Dosage: 40 MG, DAILY (1/D)
     Route: 065
  17. TAMSULOSIN HCL [Concomitant]
     Dosage: 0.4 MG, DAILY (1/D)
     Route: 065
  18. LAEVOLAC EPS [Concomitant]
     Dosage: UNK UNK, DAILY (1/D)
     Route: 065
  19. POLYETHYLENE GLYCOL [Concomitant]
     Dosage: UNK UNK, DAILY (1/D)
     Route: 065

REACTIONS (8)
  - ABDOMINAL PAIN UPPER [None]
  - ADVERSE EVENT [None]
  - DRUG INEFFECTIVE [None]
  - HOSPITALISATION [None]
  - HYPERHIDROSIS [None]
  - OROPHARYNGEAL PAIN [None]
  - TONGUE NEOPLASM BENIGN [None]
  - WEIGHT DECREASED [None]
